FAERS Safety Report 25942065 (Version 1)
Quarter: 2025Q4

REPORT INFORMATION
  Report Type: Spontaneous
  Country: JP (occurrence: JP)
  Receive Date: 20251020
  Receipt Date: 20251020
  Transmission Date: 20260117
  Serious: Yes (Other)
  Sender: MERCK SHARP & DOHME LLC
  Company Number: JP-MSD-2407JPN004427J

PATIENT
  Age: 79 Year
  Sex: Male

DRUGS (3)
  1. KEYTRUDA [Suspect]
     Active Substance: PEMBROLIZUMAB
     Indication: Lung adenocarcinoma recurrent
     Dosage: DOSE DESCRIPTION : UNK
     Route: 065
     Dates: start: 2019
  2. CARBOPLATIN [Suspect]
     Active Substance: CARBOPLATIN
     Indication: Lung adenocarcinoma recurrent
     Dosage: DOSE DESCRIPTION : UNK
     Route: 065
     Dates: start: 2019
  3. PEMETREXED DISODIUM [Suspect]
     Active Substance: PEMETREXED DISODIUM
     Indication: Lung adenocarcinoma recurrent
     Dosage: DOSE DESCRIPTION : UNK
     Route: 065
     Dates: start: 2019

REACTIONS (3)
  - Intestinal obstruction [Unknown]
  - Pneumonia bacterial [Unknown]
  - Carcinoembryonic antigen increased [Unknown]

NARRATIVE: CASE EVENT DATE: 20230101
